FAERS Safety Report 7537987-4 (Version None)
Quarter: 2011Q2

REPORT INFORMATION
  Report Type: 
  Country: None (occurrence: None)
  Receive Date: 20110609
  Receipt Date: 20110606
  Transmission Date: 20111010
  Serious: Yes (Death, Other)
  Sender: FDA-Public Use
  Company Number: US-US-EMD SERONO, INC.-7034530

PATIENT
  Sex: Female

DRUGS (3)
  1. MIRAPEX [Concomitant]
     Indication: MUSCLE SPASMS
     Dates: end: 20110101
  2. REBIF [Suspect]
     Indication: MULTIPLE SCLEROSIS
     Route: 058
     Dates: start: 20030702, end: 20110101
  3. BACLOFEN [Concomitant]
     Indication: MUSCLE SPASMS
     Dates: end: 20110101

REACTIONS (4)
  - LYMPHOMA [None]
  - DEATH [None]
  - MUSCULAR WEAKNESS [None]
  - NAUSEA [None]
